FAERS Safety Report 5701609-5 (Version None)
Quarter: 2008Q2

REPORT INFORMATION
  Report Type: 
  Country: None (occurrence: None)
  Receive Date: 20080410
  Receipt Date: 20080410
  Transmission Date: 20081010
  Serious: Yes (Other)
  Sender: FDA-Public Use
  Company Number: None

PATIENT
  Sex: Male
  Weight: 73.4827 kg

DRUGS (1)
  1. VYTORIN [Suspect]
     Indication: LOW DENSITY LIPOPROTEIN INCREASED
     Dosage: 1 DAILY
     Dates: start: 20050101, end: 20080101

REACTIONS (5)
  - ASTHENIA [None]
  - GAIT DISTURBANCE [None]
  - INSOMNIA [None]
  - MYALGIA [None]
  - PAIN [None]
